FAERS Safety Report 23762179 (Version 5)
Quarter: 2024Q2

REPORT INFORMATION
  Report Type: Report from Study
  Country: CL (occurrence: CL)
  Receive Date: 20240419
  Receipt Date: 20240603
  Transmission Date: 20240716
  Serious: Yes (Other)
  Sender: FDA-Public Use
  Company Number: CL-002147023-NVSC2024CL083045

PATIENT
  Age: 56 Year
  Sex: Female

DRUGS (4)
  1. KESIMPTA [Suspect]
     Active Substance: OFATUMUMAB
     Indication: Relapsing-remitting multiple sclerosis
     Dosage: 20 MG, QW
     Route: 058
     Dates: start: 20240415
  2. KESIMPTA [Suspect]
     Active Substance: OFATUMUMAB
     Dosage: UNK (SECOND DOSE)
     Route: 065
  3. KESIMPTA [Suspect]
     Active Substance: OFATUMUMAB
     Dosage: UNK (THIRD DOSE)
     Route: 065
     Dates: start: 20240429
  4. KESIMPTA [Suspect]
     Active Substance: OFATUMUMAB
     Dosage: UNK (LOADING DOSE)
     Route: 065
     Dates: start: 20240513

REACTIONS (9)
  - Syncope [Unknown]
  - Malaise [Unknown]
  - Muscular weakness [Unknown]
  - Movement disorder [Unknown]
  - Dysstasia [Unknown]
  - Feeling abnormal [Unknown]
  - Gait disturbance [Unknown]
  - Dyspnoea [Unknown]
  - Tachycardia [Unknown]
